FAERS Safety Report 20824470 (Version 1)
Quarter: 2022Q2

REPORT INFORMATION
  Report Type: Spontaneous
  Country: US (occurrence: US)
  Receive Date: 20220513
  Receipt Date: 20220513
  Transmission Date: 20220720
  Serious: Yes (Death, Life-Threatening, Hospitalization, Other)
  Sender: FDA-Public Use
  Company Number: US-AMGEN-USASP2022077305

PATIENT

DRUGS (5)
  1. PEGFILGRASTIM [Suspect]
     Active Substance: PEGFILGRASTIM
     Indication: Prophylaxis
     Dosage: UNK
     Route: 065
  2. RITUXIMAB [Suspect]
     Active Substance: RITUXIMAB
     Indication: Lymphoma
     Dosage: 375 MILLIGRAM/SQ. METER
     Route: 042
  3. DEXAMETHASONE [Suspect]
     Active Substance: DEXAMETHASONE
     Dosage: 40 MILLIGRAM
     Route: 042
  4. OXALIPLATIN [Suspect]
     Active Substance: OXALIPLATIN
     Dosage: 100 MILLIGRAM/SQ. METER
     Route: 042
  5. CYTARABINE [Suspect]
     Active Substance: CYTARABINE
     Dosage: 2 G/M2
     Route: 042

REACTIONS (19)
  - Death [Fatal]
  - Neutropenia [Unknown]
  - Thrombocytopenia [Unknown]
  - Pyrexia [Unknown]
  - Febrile neutropenia [Unknown]
  - Nephrolithiasis [Unknown]
  - Anaemia [Unknown]
  - Non-Hodgkin^s lymphoma [Unknown]
  - Blood creatinine increased [Unknown]
  - Conjunctivitis [Unknown]
  - Peripheral sensory neuropathy [Unknown]
  - Thrombosis [Unknown]
  - Transfusion reaction [Unknown]
  - Diverticulitis [Unknown]
  - Staphylococcal skin infection [Unknown]
  - Rhinovirus infection [Unknown]
  - Abdominal infection [Unknown]
  - Headache [Unknown]
  - Adverse event [Unknown]
